FAERS Safety Report 23453223 (Version 1)
Quarter: 2024Q1

REPORT INFORMATION
  Report Type: Spontaneous
  Country: CN (occurrence: CN)
  Receive Date: 20240129
  Receipt Date: 20240129
  Transmission Date: 20240410
  Serious: Yes (Other)
  Sender: FDA-Public Use
  Company Number: CN-ELI_LILLY_AND_COMPANY-CN202401015970

PATIENT
  Sex: Female

DRUGS (1)
  1. HUMALOG MIX50/50 [Suspect]
     Active Substance: INSULIN LISPRO
     Indication: Diabetes mellitus
     Dosage: 18 U, BID
     Route: 058
     Dates: start: 2019

REACTIONS (12)
  - Hypoglycaemia [Unknown]
  - Fall [Unknown]
  - Hyperglycaemia [Unknown]
  - Cardiac disorder [Unknown]
  - Anxiety [Unknown]
  - Anger [Unknown]
  - Hypertension [Unknown]
  - Hypotension [Unknown]
  - Constipation [Unknown]
  - Insomnia [Unknown]
  - Limb discomfort [Unknown]
  - Incorrect dose administered [Unknown]
